FAERS Safety Report 17974672 (Version 1)
Quarter: 2020Q3

REPORT INFORMATION
  Report Type: Spontaneous
  Country: US (occurrence: US)
  Receive Date: 20200702
  Receipt Date: 20200702
  Transmission Date: 20201103
  Serious: No
  Sender: FDA-Public Use
  Company Number: None

PATIENT
  Age: 33 Year
  Sex: Female
  Weight: 67.95 kg

DRUGS (5)
  1. BIOTIN [Concomitant]
     Active Substance: BIOTIN
  2. LIQUID ADVIL [Concomitant]
  3. CETIRIZINE [Concomitant]
     Active Substance: CETIRIZINE HYDROCHLORIDE
  4. BACTRIM DS [Suspect]
     Active Substance: SULFAMETHOXAZOLE\TRIMETHOPRIM
     Indication: URINARY TRACT INFECTION
     Dosage: ?          QUANTITY:14 TABLET(S);?
     Route: 048
     Dates: start: 20200623, end: 20200630
  5. DAILY VITAMIN [Concomitant]
     Active Substance: VITAMINS

REACTIONS (17)
  - Muscle spasms [None]
  - Insomnia [None]
  - Diarrhoea [None]
  - Arthralgia [None]
  - Chills [None]
  - Nausea [None]
  - Rash pruritic [None]
  - Swelling [None]
  - Abdominal pain [None]
  - Micturition urgency [None]
  - Headache [None]
  - Back pain [None]
  - Pyrexia [None]
  - Fatigue [None]
  - Dyspepsia [None]
  - Neck pain [None]
  - Heart rate increased [None]

NARRATIVE: CASE EVENT DATE: 20200630
